FAERS Safety Report 5055914-9 (Version None)
Quarter: 2006Q3

REPORT INFORMATION
  Report Type: 
  Country: None (occurrence: None)
  Receive Date: 20060717
  Receipt Date: 20060717
  Transmission Date: 20061208
  Serious: Yes (Other)
  Sender: FDA-Public Use
  Company Number: None

PATIENT
  Age: 57 Year
  Sex: Female
  Weight: 107.9561 kg

DRUGS (2)
  1. PAXIL [Suspect]
     Indication: ANXIETY
     Dosage: SEE IMAGE
     Route: 048
     Dates: start: 19980907, end: 20060717
  2. PAXIL [Suspect]
     Indication: DEPRESSION
     Dosage: SEE IMAGE
     Route: 048
     Dates: start: 19980907, end: 20060717

REACTIONS (7)
  - AGGRESSION [None]
  - DRUG DEPENDENCE [None]
  - EAR DISCOMFORT [None]
  - FEELING ABNORMAL [None]
  - IMPRISONMENT [None]
  - PARAESTHESIA [None]
  - SLEEP DISORDER [None]
